FAERS Safety Report 14950556 (Version 1)
Quarter: 2018Q2

REPORT INFORMATION
  Report Type: Spontaneous
  Country: US (occurrence: US)
  Receive Date: 20180530
  Receipt Date: 20180530
  Transmission Date: 20180711
  Serious: No
  Sender: FDA-Public Use
  Company Number: US-TEVA-2018-US-899834

PATIENT
  Sex: Male

DRUGS (1)
  1. AUSTEDO [Suspect]
     Active Substance: DEUTETRABENAZINE
     Indication: TARDIVE DYSKINESIA
     Dosage: 30 MILLIGRAM DAILY; TAKE ONE 6 MG TABLET WITH ONE 9 MG TABLET TWICE A DAY (TOTAL DOSE: 15 MG TWICE A
     Route: 048
     Dates: start: 20180320

REACTIONS (1)
  - Depression [Unknown]
